FAERS Safety Report 5090393-7 (Version None)
Quarter: 2006Q3

REPORT INFORMATION
  Report Type: 
  Country: None (occurrence: None)
  Receive Date: 20060823
  Receipt Date: 20060812
  Transmission Date: 20061208
  Serious: Yes (Other)
  Sender: FDA-Public Use
  Company Number: 2006097753

PATIENT
  Sex: Male

DRUGS (2)
  1. LISTERINE (MENTHOL, METHYL SALICYLATE, EUCALYPTOL, THYMOL) [Suspect]
     Indication: INTENTIONAL DRUG MISUSE
     Dosage: ORAL
     Route: 048
  2. ETHANOL (ETHANOL) [Suspect]
     Dosage: DRANK AN UNSPECIFIED AMOUNT OF BEER, ORAL
     Route: 048

REACTIONS (2)
  - ALCOHOL POISONING [None]
  - INTENTIONAL DRUG MISUSE [None]
